FAERS Safety Report 5454952-1 (Version None)
Quarter: 2007Q3

REPORT INFORMATION
  Report Type: 
  Country: None (occurrence: None)
  Receive Date: 20070917
  Receipt Date: 20070907
  Transmission Date: 20080115
  Serious: Yes (Life-Threatening, Hospitalization, Other)
  Sender: FDA-Public Use
  Company Number: IE-PFIZER INC-2007054893

PATIENT
  Age: 48 Year
  Sex: Male

DRUGS (5)
  1. LIPITOR [Suspect]
     Indication: BLOOD CHOLESTEROL INCREASED
  2. FUSIDIC ACID [Interacting]
     Indication: ARTHRITIS BACTERIAL
     Route: 048
  3. LINEZOLID [Concomitant]
     Indication: ARTHRITIS BACTERIAL
     Route: 048
  4. ASPIRIN [Concomitant]
     Indication: CHEST PAIN
     Route: 048
  5. TRAMADOL HCL [Concomitant]
     Indication: OSTEOARTHRITIS
     Route: 048

REACTIONS (10)
  - ASTHENIA [None]
  - DEHYDRATION [None]
  - DRUG INTERACTION [None]
  - LIVER FUNCTION TEST ABNORMAL [None]
  - MALAISE [None]
  - MOBILITY DECREASED [None]
  - NAUSEA [None]
  - RENAL FAILURE [None]
  - RHABDOMYOLYSIS [None]
  - VOMITING [None]
